FAERS Safety Report 6993907-2 (Version None)
Quarter: 2010Q3

REPORT INFORMATION
  Report Type: 
  Country: None (occurrence: None)
  Receive Date: 20100917
  Receipt Date: 20100519
  Transmission Date: 20110219
  Serious: No
  Sender: FDA-Public Use
  Company Number: US-ASTRAZENECA-2010SE23159

PATIENT
  Age: 60 Year
  Sex: Female
  Weight: 105.7 kg

DRUGS (1)
  1. SEROQUEL [Suspect]
     Route: 048

REACTIONS (6)
  - ANGINA PECTORIS [None]
  - DEPRESSED MOOD [None]
  - DRUG DOSE OMISSION [None]
  - EATING DISORDER [None]
  - INSOMNIA [None]
  - MALAISE [None]
